FAERS Safety Report 22630467 (Version 1)
Quarter: 2023Q2

REPORT INFORMATION
  Report Type: Spontaneous
  Country: JP (occurrence: JP)
  Receive Date: 20230622
  Receipt Date: 20230622
  Transmission Date: 20230722
  Serious: Yes (Other)
  Sender: FDA-Public Use
  Company Number: JP-KOWA-23JP000718

PATIENT
  Age: 87 Year
  Sex: Female

DRUGS (5)
  1. LIVALO [Suspect]
     Active Substance: PITAVASTATIN CALCIUM
     Indication: Hypercholesterolaemia
     Dosage: UNK, UNK
     Route: 048
     Dates: start: 20230525
  2. PIPERACILLIN SODIUM\TAZOBACTAM SODIUM [Suspect]
     Active Substance: PIPERACILLIN SODIUM\TAZOBACTAM SODIUM
     Indication: Coronavirus infection
     Dosage: 4.5 MG, BID
     Route: 065
     Dates: start: 20230524, end: 20230529
  3. FAMOTIDINE [Suspect]
     Active Substance: FAMOTIDINE
     Indication: Coronavirus infection
     Dosage: 20 MG, BID
     Route: 065
     Dates: start: 20230524, end: 20230531
  4. VEKLURY [Suspect]
     Active Substance: REMDESIVIR
     Indication: Coronavirus infection
     Dosage: 100 MG, QD
     Route: 065
     Dates: start: 20230525, end: 20230529
  5. TELMISARTAN [Concomitant]
     Active Substance: TELMISARTAN
     Indication: Hypertension
     Dosage: 40 MG, QD
     Route: 048
     Dates: start: 20230525

REACTIONS (1)
  - White blood cell count decreased [Recovered/Resolved]

NARRATIVE: CASE EVENT DATE: 20230527
